FAERS Safety Report 8425257-1 (Version None)
Quarter: 2012Q2

REPORT INFORMATION
  Report Type: 
  Country: None (occurrence: None)
  Receive Date: 20120605
  Receipt Date: 20120605
  Transmission Date: 20120825
  Serious: No
  Sender: FDA-Public Use
  Company Number: None

PATIENT
  Age: 6 Year
  Sex: Female
  Weight: 22.6799 kg

DRUGS (3)
  1. ROCEPHIN [Suspect]
     Indication: EAR INFECTION
     Dosage: 2 INJECTIONS (1 DOSE DIVIDED INTO 2 INJECTIONS) 3 CONSECUTIVE DAYS INJECCTION
     Dates: start: 20120514
  2. ROCEPHIN [Suspect]
     Indication: EAR INFECTION
     Dosage: 2 INJECTIONS (1 DOSE DIVIDED INTO 2 INJECTIONS) 3 CONSECUTIVE DAYS INJECCTION
     Dates: start: 20120513
  3. ROCEPHIN [Suspect]
     Indication: EAR INFECTION
     Dosage: 2 INJECTIONS (1 DOSE DIVIDED INTO 2 INJECTIONS) 3 CONSECUTIVE DAYS INJECCTION
     Dates: start: 20120515

REACTIONS (2)
  - EPISTAXIS [None]
  - BLISTER [None]
